FAERS Safety Report 8274952-6 (Version None)
Quarter: 2012Q2

REPORT INFORMATION
  Report Type: 
  Country: None (occurrence: None)
  Receive Date: 20120409
  Receipt Date: 20120330
  Transmission Date: 20120825
  Serious: Yes (Other)
  Sender: FDA-Public Use
  Company Number: GER/UKI/12/0023732

PATIENT
  Age: 66 Year
  Sex: Male

DRUGS (3)
  1. AMLODIPINE [Suspect]
     Indication: HYPERTENSION
     Dosage: 5 MG, ORAL
     Route: 048
  2. SIMVASTATIN [Suspect]
     Indication: BLOOD CHOLESTEROL
     Dosage: 20 MG, ORAL
     Route: 048
     Dates: start: 20110101
  3. ASPIRIN [Concomitant]

REACTIONS (6)
  - CHILLS [None]
  - PERIPHERAL COLDNESS [None]
  - NOCTURIA [None]
  - RAYNAUD'S PHENOMENON [None]
  - FEELING COLD [None]
  - RENAL IMPAIRMENT [None]
